FAERS Safety Report 5508656-7 (Version None)
Quarter: 2007Q4

REPORT INFORMATION
  Report Type: 
  Country: None (occurrence: None)
  Receive Date: 20071107
  Receipt Date: 20071025
  Transmission Date: 20080405
  Serious: Yes (Other)
  Sender: FDA-Public Use
  Company Number: BR-AMGEN-US251219

PATIENT
  Age: 30 Year
  Sex: Female

DRUGS (4)
  1. ENBREL [Suspect]
     Indication: PUSTULAR PSORIASIS
     Route: 058
     Dates: start: 20060101, end: 20070901
  2. PREDNISOLONE [Concomitant]
     Route: 048
  3. FOLIC ACID [Concomitant]
     Dosage: UNSPECIFIED
     Route: 048
  4. METHOTREXATE [Concomitant]
     Route: 048

REACTIONS (1)
  - STEVENS-JOHNSON SYNDROME [None]
